FAERS Safety Report 7360195-7 (Version None)
Quarter: 2011Q1

REPORT INFORMATION
  Report Type: 
  Country: None (occurrence: None)
  Receive Date: 20110307
  Receipt Date: 20110224
  Transmission Date: 20110831
  Serious: Yes (Other)
  Sender: FDA-Public Use
  Company Number: 012531

PATIENT
  Age: 38 Year
  Sex: Female

DRUGS (2)
  1. KEPPRA [Suspect]
     Dosage: 1000 MG BID
  2. LAMOTRIGINE [Suspect]
     Dosage: 25 MG, 50 MG, 100 MG
     Dates: start: 20100526

REACTIONS (2)
  - ABORTION SPONTANEOUS [None]
  - DRUG EXPOSURE DURING PREGNANCY [None]
